FAERS Safety Report 10854831 (Version 1)
Quarter: 2015Q1

REPORT INFORMATION
  Report Type: Spontaneous
  Country: IT (occurrence: None)
  Receive Date: 20150218
  Receipt Date: 20150218
  Transmission Date: 20150721
  Serious: Yes (Life-Threatening, Hospitalization)
  Sender: FDA-Public Use
  Company Number: NSR_01832_2015

PATIENT
  Age: 10 Year
  Sex: Female

DRUGS (1)
  1. BACLOFEN (BACLOFEN) [Suspect]
     Active Substance: BACLOFEN
     Indication: MUSCLE SPASTICITY
     Route: 037

REACTIONS (22)
  - Unresponsive to stimuli [None]
  - Posturing [None]
  - Tachycardia [None]
  - Malaise [None]
  - Muscle contracture [None]
  - Drug withdrawal syndrome [None]
  - Medical device complication [None]
  - Status epilepticus [None]
  - Autonomic nervous system imbalance [None]
  - Decreased appetite [None]
  - Speech disorder [None]
  - Dystonia [None]
  - Device dislocation [None]
  - Extrapyramidal disorder [None]
  - No therapeutic response [None]
  - Dysphagia [None]
  - Generalised tonic-clonic seizure [None]
  - Hypertension [None]
  - Dyskinesia [None]
  - Insomnia [None]
  - Hypertonia [None]
  - Pyrexia [None]
